FAERS Safety Report 5909002-7 (Version None)
Quarter: 2008Q4

REPORT INFORMATION
  Report Type: 
  Country: None (occurrence: None)
  Receive Date: 20081001
  Receipt Date: 20080924
  Transmission Date: 20090506
  Serious: Yes (Disabling)
  Sender: FDA-Public Use
  Company Number: CERZ-1000343

PATIENT
  Age: 16 Year
  Sex: Male
  Weight: 65 kg

DRUGS (4)
  1. CEREZYME [Suspect]
     Indication: GAUCHER'S DISEASE
     Dosage: 4000 U, INTRAVENOUS
     Route: 042
     Dates: start: 19920101
  2. BIFOSFANATES [Concomitant]
  3. VITAMIN D [Concomitant]
  4. CALCIUM (CALCIUM) [Concomitant]

REACTIONS (2)
  - OEDEMA PERIPHERAL [None]
  - PAIN IN EXTREMITY [None]
